FAERS Safety Report 4865087-0 (Version None)
Quarter: 2005Q4

REPORT INFORMATION
  Report Type: 
  Country: None (occurrence: None)
  Receive Date: 20051220
  Receipt Date: 20051220
  Transmission Date: 20060501
  Serious: Yes (Hospitalization)
  Sender: FDA-Public Use
  Company Number: None

PATIENT
  Sex: Male
  Weight: 95.9 kg

DRUGS (1)
  1. PENICILLIN G [Suspect]
     Indication: CELLULITIS
     Dosage: 4 MU Q4H IV
     Route: 042

REACTIONS (5)
  - CONVULSION [None]
  - MENTAL STATUS CHANGES [None]
  - PAIN IN EXTREMITY [None]
  - PRURITUS [None]
  - THROAT TIGHTNESS [None]
